FAERS Safety Report 5873002-6 (Version None)
Quarter: 2008Q3

REPORT INFORMATION
  Report Type: 
  Country: None (occurrence: None)
  Receive Date: 20080905
  Receipt Date: 20080826
  Transmission Date: 20090109
  Serious: Yes (Other)
  Sender: FDA-Public Use
  Company Number: US-PFIZER INC-2008071238

PATIENT
  Sex: Male

DRUGS (2)
  1. NEURONTIN [Suspect]
     Indication: INSOMNIA
     Route: 048
  2. CLONAZEPAM [Suspect]
     Indication: ANXIETY
     Route: 048

REACTIONS (4)
  - CATARACT OPERATION [None]
  - MULTIPLE CHEMICAL SENSITIVITY [None]
  - PAROSMIA [None]
  - SKIN REACTION [None]
